FAERS Safety Report 25895174 (Version 1)
Quarter: 2025Q4

REPORT INFORMATION
  Report Type: Spontaneous
  Country: US (occurrence: None)
  Receive Date: 20251007
  Receipt Date: 20251007
  Transmission Date: 20260117
  Serious: Yes (Hospitalization, Other)
  Sender: FDA-CTU
  Company Number: None

PATIENT
  Age: 89 Year
  Sex: Male

DRUGS (1)
  1. LENALIDOMIDE [Suspect]
     Active Substance: LENALIDOMIDE
     Indication: Plasma cell myeloma
     Dosage: 10MG QD ORAL?
     Route: 048
     Dates: start: 20250620

REACTIONS (6)
  - Vascular device infection [None]
  - Wound infection [None]
  - Staphylococcal infection [None]
  - Bacterial sepsis [None]
  - Cardiac failure congestive [None]
  - Organ failure [None]

NARRATIVE: CASE EVENT DATE: 20250620
